FAERS Safety Report 7800602-6 (Version None)
Quarter: 2011Q4

REPORT INFORMATION
  Report Type: 
  Country: None (occurrence: None)
  Receive Date: 20111006
  Receipt Date: 20110926
  Transmission Date: 20120403
  Serious: Yes (Hospitalization)
  Sender: FDA-Public Use
  Company Number: US-BAYER-2011-009641

PATIENT
  Age: 19 Year
  Sex: Female
  Weight: 53.061 kg

DRUGS (7)
  1. VIRAVAN DM [Concomitant]
  2. ADDERALL XR 10 [Concomitant]
     Indication: ATTENTION DEFICIT/HYPERACTIVITY DISORDER
     Dosage: DAILY
     Dates: start: 20030101, end: 20070101
  3. YASMIN [Suspect]
     Indication: CONTRACEPTION
     Dosage: UNK
     Dates: start: 20050112, end: 20050325
  4. WELLBUTRIN XL [Concomitant]
     Dosage: 150 MG, TAB
  5. MECLIZINE [Concomitant]
     Dosage: 25 MG; TAB
  6. TOPROL-XL [Concomitant]
  7. LORAZEPAM [Concomitant]
     Dosage: 1 MG, TAB

REACTIONS (13)
  - HEMIPLEGIA [None]
  - HEMIPARESIS [None]
  - APHAGIA [None]
  - CEREBELLAR INFARCTION [None]
  - EYE MOVEMENT DISORDER [None]
  - EMOTIONAL DISTRESS [None]
  - DYSPHONIA [None]
  - INJURY [None]
  - PAIN [None]
  - MUSCULAR WEAKNESS [None]
  - SPEECH DISORDER [None]
  - DYSARTHRIA [None]
  - FACIAL NERVE DISORDER [None]
